FAERS Safety Report 24663230 (Version 1)
Quarter: 2024Q4

REPORT INFORMATION
  Report Type: Spontaneous
  Country: CN (occurrence: CN)
  Receive Date: 20241126
  Receipt Date: 20241126
  Transmission Date: 20250115
  Serious: Yes (Hospitalization)
  Sender: Haleon PLC
  Company Number: CN-HALEON-2210475

PATIENT
  Age: 36 Year
  Sex: Male
  Weight: 71 kg

DRUGS (3)
  1. DICLOFENAC SODIUM [Suspect]
     Active Substance: DICLOFENAC SODIUM
     Indication: Analgesic therapy
     Dosage: TIME INTERVAL: 0.33333333 DAYS: ENTERIC-COATED TABLETS
     Route: 048
     Dates: start: 20240601, end: 20240602
  2. CEFUROXIME AXETIL [Suspect]
     Active Substance: CEFUROXIME AXETIL
     Indication: Inflammation
     Route: 048
     Dates: start: 20240601, end: 20240602
  3. FAMOTIDINE [Suspect]
     Active Substance: FAMOTIDINE
     Indication: Prophylaxis
     Route: 048
     Dates: start: 20240601, end: 20240602

REACTIONS (8)
  - Fixed eruption [Not Recovered/Not Resolved]
  - Pruritus genital [Recovered/Resolved]
  - Dermatitis contact [Not Recovered/Not Resolved]
  - Penile erythema [Not Recovered/Not Resolved]
  - Penile blister [Recovered/Resolved]
  - Effusion [Not Recovered/Not Resolved]
  - Penile swelling [Not Recovered/Not Resolved]
  - Penile erosion [Not Recovered/Not Resolved]

NARRATIVE: CASE EVENT DATE: 20240602
